FAERS Safety Report 6886748-8 (Version None)
Quarter: 2010Q3

REPORT INFORMATION
  Report Type: 
  Country: None (occurrence: None)
  Receive Date: 20100727
  Receipt Date: 20100714
  Transmission Date: 20110219
  Serious: Yes (Other)
  Sender: FDA-Public Use
  Company Number: JP-ROCHE-716280

PATIENT
  Age: 9 Year
  Sex: Female

DRUGS (4)
  1. CELLCEPT [Suspect]
     Indication: PROPHYLAXIS AGAINST TRANSPLANT REJECTION
     Dosage: NOTE: DOSAGE IS UNCERTAIN.
     Route: 048
  2. TACROLIMUS [Concomitant]
     Dosage: DOSE FORM: PERORAL AGENT, NOTE: DOSAGE IS UNCERTAIN.
     Route: 048
  3. ADRENAL COMPLEX [Concomitant]
     Dosage: DRUG: ADRENAL HORMONE PREPARATIONS.
     Route: 065
  4. ADRENAL COMPLEX [Concomitant]
     Dosage: NOTE: DOSAGE IS UNCERTAIN.
     Route: 041

REACTIONS (3)
  - COLITIS ULCERATIVE [None]
  - GLUCOSE TOLERANCE IMPAIRED [None]
  - RENAL IMPAIRMENT [None]
